FAERS Safety Report 13685642 (Version 2)
Quarter: 2017Q3

REPORT INFORMATION
  Report Type: Report from Study
  Country: CZ (occurrence: CZ)
  Receive Date: 20170623
  Receipt Date: 20170728
  Transmission Date: 20171127
  Serious: Yes (Death)
  Sender: FDA-Public Use
  Company Number: CZ-GILEAD-2017-0279173

PATIENT
  Sex: Female

DRUGS (1)
  1. IDELALISIB [Suspect]
     Active Substance: IDELALISIB
     Indication: B-CELL LYMPHOMA
     Dosage: UNK
     Route: 065
     Dates: start: 20160119, end: 20160927

REACTIONS (3)
  - Diarrhoea [Fatal]
  - Alanine aminotransferase increased [Fatal]
  - Vomiting [Fatal]

NARRATIVE: CASE EVENT DATE: 2016
